FAERS Safety Report 9599711 (Version 1)
Quarter: 2013Q4

REPORT INFORMATION
  Report Type: Spontaneous
  Country: US (occurrence: US)
  Receive Date: 20131004
  Receipt Date: 20131004
  Transmission Date: 20140711
  Serious: No
  Sender: FDA-Public Use
  Company Number: US-AMGEN-USASP2013030991

PATIENT
  Age: 42 Year
  Sex: Female
  Weight: 61.68 kg

DRUGS (9)
  1. ENBREL [Suspect]
     Indication: PRODUCT USED FOR UNKNOWN INDICATION
     Dosage: 25 MG, 2 TIMES/WK
     Route: 058
  2. FISH OIL [Concomitant]
     Dosage: UNK
  3. LEUCOVORIN CA [Concomitant]
     Dosage: 200 MG, UNK
  4. ADVIL                              /00044201/ [Concomitant]
     Dosage: 200 MG, UNK
  5. NAPROXEN [Concomitant]
     Dosage: 500 MG, UNK
  6. CLARITIN                           /00413701/ [Concomitant]
     Dosage: 10 MG, UNK
  7. METHOTREXATE [Concomitant]
     Dosage: 2.5 MG, UNK
  8. FOLIC ACID [Concomitant]
     Dosage: 20 MG, UNK
  9. CORTISONE [Concomitant]
     Dosage: 1 %, UNK

REACTIONS (3)
  - Rash erythematous [Unknown]
  - Cough [Unknown]
  - Upper respiratory tract infection [Unknown]
